FAERS Safety Report 16842190 (Version 2)
Quarter: 2019Q4

REPORT INFORMATION
  Report Type: Spontaneous
  Country: MY (occurrence: MY)
  Receive Date: 20190923
  Receipt Date: 20191004
  Transmission Date: 20200122
  Serious: Yes (Hospitalization, Other)
  Sender: FDA-Public Use
  Company Number: MY-BAXTER-2019BAX018202

PATIENT
  Age: 55 Year
  Sex: Female

DRUGS (9)
  1. SODUM CHLORIDE INJ 0.9% BP [Suspect]
     Active Substance: SODIUM CHLORIDE
     Dosage: WITH 3 GRAMS OF POTASSIUM CHLORIDE PER LITER
     Route: 042
  2. POTASSIUM CHLORIDE. [Suspect]
     Active Substance: POTASSIUM CHLORIDE
     Indication: HYPONATRAEMIA
     Dosage: ALONG WITH 0.9% SALINE INFUSED AT 104 ML/HOUR (FIRST DOSE)
     Route: 042
  3. AMLODIPINE [Concomitant]
     Active Substance: AMLODIPINE BESYLATE
     Indication: HYPERTENSION
     Route: 065
  4. DESMOPRESSIN [Concomitant]
     Active Substance: DESMOPRESSIN
     Indication: PRODUCT USED FOR UNKNOWN INDICATION
     Route: 058
  5. COVERSYL PLUS [Concomitant]
     Active Substance: INDAPAMIDE\PERINDOPRIL
     Indication: HYPERTENSION
     Route: 065
  6. POTASSIUM CHLORIDE. [Suspect]
     Active Substance: POTASSIUM CHLORIDE
     Dosage: ALONG WITH 0.9% SALINE INFUSED AT 104 ML/HOUR (SECOND DOSE)
     Route: 042
  7. SALINE [Suspect]
     Active Substance: SODIUM CHLORIDE
     Indication: HYPONATRAEMIA
     Route: 042
  8. SODUM CHLORIDE INJ 0.9% BP [Suspect]
     Active Substance: SODIUM CHLORIDE
     Indication: HYPONATRAEMIA
     Dosage: WITH 3 GRAMS OF POTASSIUM CHLORIDE PER LITER
     Route: 042
  9. DEXTROSE. [Concomitant]
     Active Substance: DEXTROSE
     Indication: PRODUCT USED FOR UNKNOWN INDICATION
     Route: 065

REACTIONS (1)
  - Osmotic demyelination syndrome [Recovering/Resolving]
